FAERS Safety Report 24870815 (Version 1)
Quarter: 2025Q1

REPORT INFORMATION
  Report Type: Spontaneous
  Country: US (occurrence: US)
  Receive Date: 20250121
  Receipt Date: 20250121
  Transmission Date: 20250409
  Serious: No
  Sender: BRISTOL-MYERS SQUIBB COMPANY
  Company Number: US-BRISTOL-MYERS SQUIBB COMPANY-2025-007905

PATIENT
  Age: 47 Year
  Sex: Female

DRUGS (2)
  1. ORENCIA [Suspect]
     Active Substance: ABATACEPT
     Indication: Migraine without aura
     Route: 058
     Dates: start: 202103
  2. ORENCIA [Suspect]
     Active Substance: ABATACEPT
     Indication: Arthritis

REACTIONS (1)
  - Illness [Unknown]
